FAERS Safety Report 17190314 (Version 1)
Quarter: 2019Q4

REPORT INFORMATION
  Report Type: Report from Study
  Country: GB (occurrence: GB)
  Receive Date: 20191223
  Receipt Date: 20191223
  Transmission Date: 20200122
  Serious: Yes (Other)
  Sender: FDA-Public Use
  Company Number: GB-BIOGEN-2019BI00819064

PATIENT
  Sex: Female

DRUGS (3)
  1. TECFIDERA [Suspect]
     Active Substance: DIMETHYL FUMARATE
     Indication: PRODUCT USED FOR UNKNOWN INDICATION
     Route: 065
     Dates: start: 201508, end: 20170309
  2. GILENYA [Suspect]
     Active Substance: FINGOLIMOD HYDROCHLORIDE
     Indication: MULTIPLE SCLEROSIS
     Route: 048
     Dates: start: 20131114, end: 20150409
  3. GILENYA [Suspect]
     Active Substance: FINGOLIMOD HYDROCHLORIDE
     Route: 048
     Dates: start: 201011, end: 20130520

REACTIONS (19)
  - Facial pain [Unknown]
  - White blood cell count decreased [Recovered/Resolved]
  - Paraesthesia [Unknown]
  - Neuralgia [Recovered/Resolved]
  - Hot flush [Unknown]
  - Contusion [Recovered/Resolved]
  - Sensory loss [Unknown]
  - Memory impairment [Unknown]
  - Back pain [Unknown]
  - Pruritus [Unknown]
  - Urinary incontinence [Unknown]
  - Urinary retention [Unknown]
  - Multiple sclerosis relapse [Unknown]
  - Trigeminal neuralgia [Unknown]
  - Feeling abnormal [Unknown]
  - Pain in extremity [Recovered/Resolved]
  - Fall [Recovered/Resolved]
  - Lymphocyte count decreased [Recovered/Resolved]
  - Sensory disturbance [Unknown]

NARRATIVE: CASE EVENT DATE: 201611
